FAERS Safety Report 14835766 (Version 1)
Quarter: 2018Q2

REPORT INFORMATION
  Report Type: Spontaneous
  Country: US (occurrence: US)
  Receive Date: 20180502
  Receipt Date: 20180502
  Transmission Date: 20180711
  Serious: Yes (Death, Hospitalization, Other)
  Sender: FDA-Public Use
  Company Number: US-TEVA-2018-US-887730

PATIENT
  Age: 32 Year
  Sex: Female

DRUGS (5)
  1. EPOPROSTENOL. [Suspect]
     Active Substance: EPOPROSTENOL
     Indication: ANTICOAGULANT THERAPY
     Dosage: INITIAL DOSE UNKNOWN
     Route: 042
  2. EPOPROSTENOL. [Suspect]
     Active Substance: EPOPROSTENOL
     Indication: ANTICOAGULANT THERAPY
     Dosage: 20 NG/KG/MIN; FURTHER TITRATED TO 32 NG/KG/MIN
     Route: 042
  3. FUROSEMIDE. [Concomitant]
     Active Substance: FUROSEMIDE
     Indication: CARDIAC FAILURE
     Route: 048
  4. EPOPROSTENOL. [Suspect]
     Active Substance: EPOPROSTENOL
     Indication: ANTICOAGULANT THERAPY
     Dosage: 32 NG/KG/MIN
     Route: 042
  5. ENOXAPARIN [Suspect]
     Active Substance: ENOXAPARIN
     Indication: ANTICOAGULANT THERAPY
     Route: 065

REACTIONS (6)
  - Brain compression [Fatal]
  - Retroplacental haematoma [Recovered/Resolved]
  - Thrombocytopenia [Recovering/Resolving]
  - Postpartum haemorrhage [Recovering/Resolving]
  - Subarachnoid haemorrhage [Fatal]
  - Maternal exposure during pregnancy [Recovered/Resolved]
